FAERS Safety Report 14850320 (Version 1)
Quarter: 2018Q2

REPORT INFORMATION
  Report Type: Other
  Country: FR (occurrence: FR)
  Receive Date: 20180505
  Receipt Date: 20180505
  Transmission Date: 20180711
  Serious: Yes (Hospitalization)
  Sender: FDA-Public Use
  Company Number: FR-GLENMARK PHARMACEUTICALS-2018GMK034853

PATIENT

DRUGS (7)
  1. PURINETHOL [Suspect]
     Active Substance: MERCAPTOPURINE
     Indication: ACUTE LYMPHOCYTIC LEUKAEMIA
     Dosage: 300 MG, UNK (IN ONE MONTH)
     Route: 048
     Dates: start: 20170529, end: 20180402
  2. BACTRIM [Suspect]
     Active Substance: SULFAMETHOXAZOLE\TRIMETHOPRIM
     Indication: PROPHYLAXIS
     Dosage: 6 DF, QW
     Route: 048
     Dates: start: 20160704
  3. METHOTREXATE. [Suspect]
     Active Substance: METHOTREXATE
     Indication: ACUTE LYMPHOCYTIC LEUKAEMIA
     Dosage: 30 MG, UNK (IN ONE MONTH)
     Route: 048
     Dates: start: 20170529, end: 20180402
  4. GABAPENTIN. [Suspect]
     Active Substance: GABAPENTIN
     Indication: PRODUCT USED FOR UNKNOWN INDICATION
     Dosage: 900 MG, OD
     Route: 048
     Dates: start: 20160710, end: 20180404
  5. VINCRISTINE HOSPIRA [Suspect]
     Active Substance: VINCRISTINE
     Indication: ACUTE LYMPHOCYTIC LEUKAEMIA
     Dosage: 1.5 MG/M2, UNK (TOUTES LES 4 SEMAINES) (EVERY 4 WEEKS)
     Route: 042
     Dates: start: 20160708, end: 20180402
  6. DECTANCYL 0,5 MG, COMPRIM? [Suspect]
     Active Substance: DEXAMETHASONE ACETATE
     Indication: ACUTE LYMPHOCYTIC LEUKAEMIA
     Dosage: 4.5 MG, UNK (/JOUR 5 JOURS PAR MOIS)
     Route: 048
     Dates: start: 20160713, end: 20180402
  7. ONDANSETRON ACCORD 2 MG/ML, SOLUTION INJECTABLE [Suspect]
     Active Substance: ONDANSETRON HYDROCHLORIDE
     Indication: PROPHYLAXIS OF NAUSEA AND VOMITING
     Dosage: 4 MG, UNK (IN 28 DAY)
     Route: 042
     Dates: start: 20160723, end: 20180402

REACTIONS (1)
  - Pancreatitis acute [Recovering/Resolving]

NARRATIVE: CASE EVENT DATE: 20180402
